FAERS Safety Report 4346018-9 (Version None)
Quarter: 2004Q2

REPORT INFORMATION
  Report Type: 
  Country: None (occurrence: None)
  Receive Date: 20040426
  Receipt Date: 20040416
  Transmission Date: 20050107
  Serious: Yes (Life-Threatening)
  Sender: FDA-Public Use
  Company Number: PHBS2004TR05229

PATIENT
  Age: 57 Year
  Sex: Female
  Weight: 75 kg

DRUGS (2)
  1. FEMARA [Suspect]
     Indication: BREAST CANCER
     Dosage: 2.5 MG, QD
     Route: 048
     Dates: start: 20031208, end: 20031218
  2. ENDOL [Concomitant]
     Dosage: UNK, UNK
     Dates: start: 20031115

REACTIONS (3)
  - DYSPNOEA [None]
  - PERICARDIAL EFFUSION [None]
  - PERICARDITIS [None]
